FAERS Safety Report 10060762 (Version 4)
Quarter: 2014Q2

REPORT INFORMATION
  Report Type: Report from Study
  Country: AR (occurrence: AR)
  Receive Date: 20140404
  Receipt Date: 20140609
  Transmission Date: 20141212
  Serious: Yes (Hospitalization, Other)
  Sender: FDA-Public Use
  Company Number: PHHY2014AR041155

PATIENT
  Age: 24 Year
  Sex: Male

DRUGS (5)
  1. TRILEPTAL [Suspect]
     Indication: EPILEPSY
     Dosage: 600 MG, UNK
     Route: 048
  2. TRILEPTAL [Suspect]
     Indication: PETIT MAL EPILEPSY
     Dosage: 1200 MG, DAILY
  3. TRILEPTAL [Suspect]
     Indication: CONVULSION
     Dosage: 1800 MG, DAILY
  4. TRILEPTAL [Suspect]
     Dosage: 2400 MG, DAILY
     Dates: start: 201403
  5. CLONAGIN [Concomitant]
     Indication: PETIT MAL EPILEPSY
     Dosage: UNK UKN, UNK

REACTIONS (5)
  - Convulsion [Recovering/Resolving]
  - Facial bones fracture [Recovered/Resolved]
  - Tooth fracture [Recovered/Resolved]
  - Generalised tonic-clonic seizure [Unknown]
  - Confusional state [Recovering/Resolving]
